FAERS Safety Report 4853626-5 (Version None)
Quarter: 2005Q4

REPORT INFORMATION
  Report Type: 
  Country: None (occurrence: None)
  Receive Date: 20051214
  Receipt Date: 20051209
  Transmission Date: 20060501
  Serious: Yes (Hospitalization)
  Sender: FDA-Public Use
  Company Number: 2005SE07119

PATIENT
  Age: 21929 Day
  Sex: Male
  Weight: 64 kg

DRUGS (6)
  1. BLOPRESS [Suspect]
     Indication: HYPERTENSION
     Route: 048
     Dates: start: 20021109
  2. DIURETICS [Concomitant]
     Indication: HYPERTENSION
     Route: 065
  3. CALCIUM CHANNEL BLOCKERS [Concomitant]
     Indication: HYPERTENSION
     Route: 065
  4. INSULINS AND ANALOGUES [Concomitant]
     Indication: DIABETES MELLITUS NON-INSULIN-DEPENDENT
     Route: 058
  5. SULFONAMIDES, UREA DERIVATIVES [Concomitant]
     Indication: DIABETES MELLITUS NON-INSULIN-DEPENDENT
     Route: 048
  6. CHOLESTEROL- AND TRIGLYCERIDE REDUCERS [Concomitant]
     Indication: HYPERLIPIDAEMIA
     Route: 065

REACTIONS (1)
  - PROSTATE CANCER [None]
